FAERS Safety Report 18955839 (Version 1)
Quarter: 2021Q1

REPORT INFORMATION
  Report Type: Spontaneous
  Country: US (occurrence: US)
  Receive Date: 20210301
  Receipt Date: 20210301
  Transmission Date: 20210420
  Serious: No
  Sender: FDA-Public Use
  Company Number: US-ABBVIE-20K-163-3407281-00

PATIENT
  Sex: Male

DRUGS (3)
  1. TESTOSTERONE. [Suspect]
     Active Substance: TESTOSTERONE
     Indication: PRODUCT USED FOR UNKNOWN INDICATION
     Route: 061
  2. TESTOSTERONE TEVA [Suspect]
     Active Substance: TESTOSTERONE
     Dosage: LIQUID FOR EXTERNAL USE
     Route: 061
     Dates: start: 2020
  3. TESTOSTERONE TEVA [Suspect]
     Active Substance: TESTOSTERONE
     Indication: PRODUCT USED FOR UNKNOWN INDICATION
     Route: 061
     Dates: start: 202003, end: 2020

REACTIONS (3)
  - Product substitution issue [Unknown]
  - Thrombosis [Unknown]
  - Dyspnoea [Unknown]

NARRATIVE: CASE EVENT DATE: 2020
